FAERS Safety Report 18877121 (Version 1)
Quarter: 2021Q1

REPORT INFORMATION
  Report Type: Spontaneous
  Country: US (occurrence: US)
  Receive Date: 20210210
  Receipt Date: 20210210
  Transmission Date: 20210420
  Serious: No
  Sender: FDA-Public Use
  Company Number: None

PATIENT
  Age: 65 Year
  Sex: Male
  Weight: 112 kg

DRUGS (2)
  1. CYTARABINE. [Suspect]
     Active Substance: CYTARABINE
     Dates: end: 20210126
  2. DAUNORUBICIN [Suspect]
     Active Substance: DAUNORUBICIN
     Dates: end: 20210126

REACTIONS (10)
  - Agitation [None]
  - Increased bronchial secretion [None]
  - Depressed level of consciousness [None]
  - Volume blood [None]
  - Dyspnoea [None]
  - Oxygen saturation decreased [None]
  - Use of accessory respiratory muscles [None]
  - Blood electrolytes abnormal [None]
  - Atrial fibrillation [None]
  - Hypotension [None]

NARRATIVE: CASE EVENT DATE: 20210128
